FAERS Safety Report 8799713 (Version 1)
Quarter: 2012Q4

REPORT INFORMATION
  Report Type: 
  Country: US (occurrence: US)
  Receive Date: 20120919
  Receipt Date: 20120919
  Transmission Date: 20130627
  Serious: Yes (Death, Other)
  Sender: FDA-Public Use
  Company Number: US-009507513-2011SP050343

PATIENT

DRUGS (3)
  1. SAPHRIS [Suspect]
     Indication: PRODUCT USED FOR UNKNOWN INDICATION
  2. RISPERIDONE [Suspect]
  3. FANAPT [Suspect]
     Dosage: 6 mg, bid
     Route: 048

REACTIONS (2)
  - Pulmonary embolism [Fatal]
  - Priapism [Fatal]
